FAERS Safety Report 4694327-6 (Version None)
Quarter: 2005Q2

REPORT INFORMATION
  Report Type: 
  Country: None (occurrence: None)
  Receive Date: 20050614
  Receipt Date: 20050301
  Transmission Date: 20051028
  Serious: No
  Sender: FDA-Public Use
  Company Number: USA050392066

PATIENT
  Age: 66 Year
  Sex: Male

DRUGS (6)
  1. CIALIS [Suspect]
     Indication: ERECTILE DYSFUNCTION
     Dosage: 10 MG
     Dates: start: 20050201
  2. LANTUS [Concomitant]
  3. GLUCOPHAGE [Concomitant]
  4. GLUCOTROL [Concomitant]
  5. TOPROL XL (METROPOLOL SUCCINATE) [Concomitant]
  6. PRILOSEC (OMEPRAZOLE RATIOPHARM) [Concomitant]

REACTIONS (2)
  - ACNE [None]
  - HYPERSENSITIVITY [None]
